FAERS Safety Report 24340942 (Version 1)
Quarter: 2024Q3

REPORT INFORMATION
  Report Type: Spontaneous
  Country: FR (occurrence: FR)
  Receive Date: 20240919
  Receipt Date: 20240919
  Transmission Date: 20241016
  Serious: Yes (Life-Threatening)
  Sender: TEVA
  Company Number: None

PATIENT
  Age: 28 Year
  Sex: Male
  Weight: 73 kg

DRUGS (3)
  1. CISPLATIN [Suspect]
     Active Substance: CISPLATIN
     Indication: Osteosarcoma
     Dosage: TIME INTERVAL: CYCLICAL: 5 CYCLES (POSITION UNKNOWN)
     Route: 042
     Dates: start: 20150126, end: 20150420
  2. ADRIAMYCIN [Concomitant]
     Active Substance: DOXORUBICIN HYDROCHLORIDE
     Indication: Osteosarcoma
     Dosage: TIME INTERVAL: TOTAL: 5 CYCLES (POSITION UNKNOWN)
     Route: 042
     Dates: start: 20150126, end: 20150420
  3. IFOSFAMIDE [Suspect]
     Active Substance: IFOSFAMIDE
     Indication: Osteosarcoma
     Dosage: TIME INTERVAL: CYCLICAL: 5 CYCLES (POSITION UNKNOWN)
     Route: 042
     Dates: start: 20150126, end: 20150420

REACTIONS (1)
  - Chronic kidney disease [Not Recovered/Not Resolved]

NARRATIVE: CASE EVENT DATE: 20190101
